FAERS Safety Report 6531136-7 (Version None)
Quarter: 2010Q1

REPORT INFORMATION
  Report Type: 
  Country: None (occurrence: None)
  Receive Date: 20100108
  Receipt Date: 20091203
  Transmission Date: 20100710
  Serious: No
  Sender: FDA-Public Use
  Company Number: US-BAYER-200942101NA

PATIENT
  Age: 31 Year
  Sex: Female
  Weight: 51 kg

DRUGS (2)
  1. MIRENA [Suspect]
     Indication: CONTRACEPTION
     Dosage: CONTINUOUS
     Route: 015
     Dates: start: 20091105, end: 20091117
  2. DOXYCYCLINE [Concomitant]
     Dosage: UNKNOWN DOSAGE
     Dates: start: 20091101

REACTIONS (4)
  - DIZZINESS [None]
  - HEADACHE [None]
  - PRURITUS [None]
  - RASH MACULAR [None]
